FAERS Safety Report 9161950 (Version 1)
Quarter: 2013Q1

REPORT INFORMATION
  Report Type: Spontaneous
  Country: FR (occurrence: FR)
  Receive Date: 20130314
  Receipt Date: 20130314
  Transmission Date: 20140127
  Serious: Yes (Hospitalization)
  Sender: FDA-Public Use
  Company Number: FR-JNJFOC-20130304542

PATIENT
  Sex: Female

DRUGS (14)
  1. XARELTO [Suspect]
     Indication: CEREBROVASCULAR ACCIDENT PROPHYLAXIS
     Route: 048
     Dates: start: 201301, end: 201301
  2. XARELTO [Suspect]
     Indication: ATRIAL FIBRILLATION
     Route: 048
     Dates: start: 201301, end: 201301
  3. KARDEGIC [Suspect]
     Indication: PRODUCT USED FOR UNKNOWN INDICATION
     Route: 048
     Dates: start: 201301, end: 201301
  4. LOVENOX [Suspect]
     Indication: ATRIAL FIBRILLATION
     Route: 058
     Dates: start: 201301, end: 201301
  5. PLAVIX [Suspect]
     Indication: PRODUCT USED FOR UNKNOWN INDICATION
     Route: 048
     Dates: end: 201301
  6. VITAMIN D3 [Concomitant]
     Route: 065
  7. SPECIAFOLDINE [Concomitant]
     Route: 065
  8. LORAZEPAM [Concomitant]
     Route: 065
  9. TANAKAN [Concomitant]
     Route: 065
  10. AMLOR [Concomitant]
     Route: 065
  11. FLECAINE [Concomitant]
     Route: 065
  12. LASILIX [Concomitant]
     Route: 065
  13. TAREG [Concomitant]
     Route: 065
  14. PLAVIX [Concomitant]
     Route: 065

REACTIONS (4)
  - Abdominal wall haematoma [Recovering/Resolving]
  - Anaemia [Recovering/Resolving]
  - Renal failure acute [Recovered/Resolved]
  - Hypotension [Recovered/Resolved]
